FAERS Safety Report 22058156 (Version 2)
Quarter: 2023Q1

REPORT INFORMATION
  Report Type: Spontaneous
  Country: IL (occurrence: IL)
  Receive Date: 20230303
  Receipt Date: 20230313
  Transmission Date: 20230417
  Serious: Yes (Other)
  Sender: FDA-Public Use
  Company Number: IL-ALXN-A202302602

PATIENT
  Age: 4 Year
  Sex: Male
  Weight: 81.5 kg

DRUGS (1)
  1. KANUMA [Suspect]
     Active Substance: SEBELIPASE ALFA
     Indication: Lysosomal acid lipase deficiency
     Dosage: UNK
     Route: 065
     Dates: start: 2019

REACTIONS (2)
  - Hypothyroidism [Not Recovered/Not Resolved]
  - Therapeutic agent-diagnostic test interaction [Unknown]

NARRATIVE: CASE EVENT DATE: 20221123
